FAERS Safety Report 13500149 (Version 1)
Quarter: 2017Q2

REPORT INFORMATION
  Report Type: Spontaneous
  Country: US (occurrence: US)
  Receive Date: 20170501
  Receipt Date: 20170501
  Transmission Date: 20170830
  Serious: No
  Sender: FDA-Public Use
  Company Number: US-SHIRE-US201709592

PATIENT
  Age: 49 Year
  Sex: Female
  Weight: 81.63 kg

DRUGS (4)
  1. SODIUM CHLORIDE. [Concomitant]
     Active Substance: SODIUM CHLORIDE
     Indication: PRODUCT USED FOR UNKNOWN INDICATION
     Dosage: UNK, UNKNOWN
     Route: 065
  2. XIIDRA [Suspect]
     Active Substance: LIFITEGRAST
     Indication: DRY EYE
     Dosage: 1 GTT (OU), 2X/DAY:BID
     Route: 047
     Dates: start: 201611, end: 2016
  3. RESTASIS [Concomitant]
     Active Substance: CYCLOSPORINE
     Indication: DRY EYE
     Dosage: 1 GTT, 2X/DAY:BID
     Route: 047
  4. XIIDRA [Suspect]
     Active Substance: LIFITEGRAST
     Dosage: 1 GTT (OU), 2X/DAY:BID
     Route: 047
     Dates: start: 20170415

REACTIONS (4)
  - Instillation site pain [Not Recovered/Not Resolved]
  - Abdominal pain upper [Not Recovered/Not Resolved]
  - Dysgeusia [Recovered/Resolved]
  - Instillation site erythema [Not Recovered/Not Resolved]

NARRATIVE: CASE EVENT DATE: 2016
